FAERS Safety Report 9528263 (Version 2)
Quarter: 2013Q4

REPORT INFORMATION
  Report Type: Spontaneous
  Country: FR (occurrence: FR)
  Receive Date: 20130917
  Receipt Date: 20131004
  Transmission Date: 20140711
  Serious: Yes (Other)
  Sender: FDA-Public Use
  Company Number: PHHY2013FR101341

PATIENT
  Age: 39 Year
  Sex: Female
  Weight: 61 kg

DRUGS (5)
  1. SIGNIFOR [Suspect]
     Indication: PITUITARY-DEPENDENT CUSHING^S SYNDROME
     Dosage: 0.6 MG, BID
     Route: 058
     Dates: start: 20130712
  2. LEVOTHYROX [Concomitant]
     Dosage: 75 UG, QD
     Dates: start: 201304
  3. AMLODIPINE [Concomitant]
     Dosage: 5 MG, QD
     Route: 048
     Dates: start: 201304
  4. MINRIN MELT [Concomitant]
     Dosage: 60 UG, TID
     Dates: start: 201304
  5. INSULIN [Concomitant]

REACTIONS (5)
  - Adrenal insufficiency [Recovering/Resolving]
  - Blood cortisol decreased [Recovering/Resolving]
  - Asthenia [Recovering/Resolving]
  - Hyponatraemia [Recovering/Resolving]
  - Blood corticotrophin decreased [Recovering/Resolving]
